FAERS Safety Report 23300889 (Version 1)
Quarter: 2023Q4

REPORT INFORMATION
  Report Type: Spontaneous
  Country: RU (occurrence: RU)
  Receive Date: 20231215
  Receipt Date: 20231215
  Transmission Date: 20240109
  Serious: Yes (Hospitalization)
  Sender: FDA-Public Use
  Company Number: RU-002147023-NVSC2023RU264323

PATIENT
  Sex: Male

DRUGS (1)
  1. COSENTYX [Suspect]
     Active Substance: SECUKINUMAB
     Indication: Product used for unknown indication
     Dosage: 150 MG
     Route: 058

REACTIONS (6)
  - Acute kidney injury [Unknown]
  - Body temperature increased [Unknown]
  - Platelet disorder [Unknown]
  - Blood creatinine abnormal [Unknown]
  - Anuria [Unknown]
  - Viral infection [Unknown]

NARRATIVE: CASE EVENT DATE: 20231202
